FAERS Safety Report 12298662 (Version 1)
Quarter: 2016Q2

REPORT INFORMATION
  Report Type: Spontaneous
  Country: US (occurrence: US)
  Receive Date: 20160425
  Receipt Date: 20160425
  Transmission Date: 20160815
  Serious: No
  Sender: FDA-Public Use
  Company Number: US-BIOGEN-2016BI00224403

PATIENT
  Age: 41 Year
  Sex: Male

DRUGS (2)
  1. AVONEX [Suspect]
     Active Substance: INTERFERON BETA-1A
     Indication: MULTIPLE SCLEROSIS
     Route: 065
  2. TYSABRI [Suspect]
     Active Substance: NATALIZUMAB
     Indication: MULTIPLE SCLEROSIS
     Route: 065

REACTIONS (7)
  - Pruritus [Unknown]
  - General physical health deterioration [Unknown]
  - Fall [Unknown]
  - Relapsing-remitting multiple sclerosis [Unknown]
  - Optic neuritis [Unknown]
  - Sensory disturbance [Unknown]
  - Gastrointestinal disorder [Unknown]
